FAERS Safety Report 5531664-7 (Version None)
Quarter: 2007Q4

REPORT INFORMATION
  Report Type: 
  Country: None (occurrence: None)
  Receive Date: 20071203
  Receipt Date: 20071123
  Transmission Date: 20080405
  Serious: Yes (Other)
  Sender: FDA-Public Use
  Company Number: US-AMGEN-QUU253766

PATIENT
  Sex: Female

DRUGS (3)
  1. NEULASTA [Suspect]
     Indication: CHEMOTHERAPY
     Route: 065
     Dates: start: 20071121
  2. ADRIAMYCIN PFS [Concomitant]
     Route: 065
  3. CISPLATIN [Concomitant]
     Route: 065

REACTIONS (3)
  - DYSPNOEA [None]
  - HYPOXIA [None]
  - WHITE BLOOD CELL COUNT INCREASED [None]
